FAERS Safety Report 13847278 (Version 1)
Quarter: 2017Q3

REPORT INFORMATION
  Report Type: Spontaneous
  Country: US (occurrence: US)
  Receive Date: 20170808
  Receipt Date: 20170808
  Transmission Date: 20171127
  Serious: No
  Sender: FDA-Public Use
  Company Number: US-BIOMARINAP-US-2017-115003

PATIENT
  Age: 1 Year
  Sex: Female

DRUGS (1)
  1. ALDURAZYME [Suspect]
     Active Substance: LARONIDASE
     Indication: MUCOPOLYSACCHARIDOSIS I
     Dosage: 5.8 MG, QW
     Route: 041
     Dates: start: 20161217

REACTIONS (2)
  - Protein urine present [Unknown]
  - Swelling [Unknown]

NARRATIVE: CASE EVENT DATE: 20170728
